FAERS Safety Report 6156109-8 (Version None)
Quarter: 2009Q2

REPORT INFORMATION
  Report Type: 
  Country: None (occurrence: None)
  Receive Date: 20090413
  Receipt Date: 20090413
  Transmission Date: 20091009
  Serious: Yes (Other)
  Sender: FDA-Public Use
  Company Number: None

PATIENT
  Age: 73 Year
  Sex: Female
  Weight: 78.9259 kg

DRUGS (1)
  1. DIOVAN [Suspect]
     Indication: BLOOD PRESSURE INCREASED
     Dosage: 1 TAB 1 DAILY PO
     Route: 048
     Dates: start: 20090408, end: 20090410

REACTIONS (2)
  - MUSCLE SPASMS [None]
  - PAIN [None]
